FAERS Safety Report 12583925 (Version 2)
Quarter: 2016Q3

REPORT INFORMATION
  Report Type: Spontaneous
  Country: US (occurrence: US)
  Receive Date: 20160722
  Receipt Date: 20160920
  Transmission Date: 20161109
  Serious: Yes (Other)
  Sender: FDA-Public Use
  Company Number: US-BAYER-2016-140828

PATIENT
  Sex: Female

DRUGS (1)
  1. CIPRO [Suspect]
     Active Substance: CIPROFLOXACIN HYDROCHLORIDE
     Dosage: 250 MG, UNK
     Dates: start: 20141017

REACTIONS (13)
  - Tendon disorder [None]
  - Weight bearing difficulty [None]
  - Neuropathy peripheral [None]
  - Pain [None]
  - Rotator cuff syndrome [None]
  - Tendon rupture [None]
  - Pain in extremity [None]
  - Muscle spasms [None]
  - Tendinous contracture [None]
  - Tendonitis [None]
  - Nerve injury [None]
  - Muscular weakness [None]
  - Complex regional pain syndrome [None]
